FAERS Safety Report 18287011 (Version 7)
Quarter: 2021Q2

REPORT INFORMATION
  Report Type: Spontaneous
  Country: CA (occurrence: CA)
  Receive Date: 20200921
  Receipt Date: 20210622
  Transmission Date: 20210717
  Serious: Yes (Other)
  Sender: FDA-Public Use
  Company Number: CA-CELLTRION INC.-2017CA011718

PATIENT

DRUGS (36)
  1. INFLECTRA [Suspect]
     Active Substance: INFLIXIMAB-DYYB
     Dosage: 400 MG, (0, 2, 6, THEN EVERY 8 WEEKS)
     Route: 042
     Dates: start: 20181002
  2. INFLECTRA [Suspect]
     Active Substance: INFLIXIMAB-DYYB
     Dosage: 400 MG, (0, 2, 6, THEN EVERY 8 WEEKS)
     Route: 042
     Dates: start: 20191114
  3. INFLECTRA [Suspect]
     Active Substance: INFLIXIMAB-DYYB
     Dosage: 5 MG/KG EVERY 8 WEEKS
     Route: 042
     Dates: start: 20200714
  4. DEXILANT [Concomitant]
     Active Substance: DEXLANSOPRAZOLE
     Dosage: UNK
  5. SANDOZ?BISOPROLOL [Concomitant]
     Active Substance: BISOPROLOL FUMARATE
     Dosage: 5 MG, 1X/DAY
     Route: 048
  6. INFLECTRA [Suspect]
     Active Substance: INFLIXIMAB-DYYB
     Indication: PSORIATIC ARTHROPATHY
     Dosage: 400 MG, (0, 2, 6, THEN EVERY 8 WEEKS)
     Route: 042
     Dates: start: 20171005
  7. INFLECTRA [Suspect]
     Active Substance: INFLIXIMAB-DYYB
     Dosage: 400 MG, (0, 2, 6, THEN EVERY 8 WEEKS)
     Route: 042
     Dates: start: 20190516
  8. HYDROXYCHLOROQUINE [Concomitant]
     Active Substance: HYDROXYCHLOROQUINE
     Dosage: 400 MG, 1X/DAY
     Dates: start: 201609
  9. INFLECTRA [Suspect]
     Active Substance: INFLIXIMAB-DYYB
     Dosage: 400 MG, (0, 2, 6, THEN EVERY 8 WEEKS)
     Route: 042
     Dates: start: 20180724
  10. INFLECTRA [Suspect]
     Active Substance: INFLIXIMAB-DYYB
     Dosage: 400 MG, (0, 2, 6, THEN EVERY 8 WEEKS)
     Route: 042
     Dates: start: 20190917
  11. INFLECTRA [Suspect]
     Active Substance: INFLIXIMAB-DYYB
     Dosage: 5 MG/KG EVERY 8 WEEKS
     Route: 042
     Dates: start: 20200513
  12. RATIO IRBESARTAN HCTZ [Concomitant]
     Active Substance: HYDROCHLOROTHIAZIDE\IRBESARTAN
     Dosage: 1 DF, 1X/DAY
     Route: 048
  13. INFLECTRA [Suspect]
     Active Substance: INFLIXIMAB-DYYB
     Dosage: 400 MG, (0, 2, 6, THEN EVERY 8 WEEKS)
     Route: 042
     Dates: start: 20180604
  14. INFLECTRA [Suspect]
     Active Substance: INFLIXIMAB-DYYB
     Dosage: 400 MG, (0, 2, 6, THEN EVERY 8 WEEKS)
     Route: 042
     Dates: start: 20181002
  15. INFLECTRA [Suspect]
     Active Substance: INFLIXIMAB-DYYB
     Dosage: 400 MG, (0, 2, 6, THEN EVERY 8 WEEKS)
     Route: 042
     Dates: start: 20190716
  16. INFLECTRA [Suspect]
     Active Substance: INFLIXIMAB-DYYB
     Dosage: 5 MG/KG EVERY 8 WEEKS
     Route: 042
     Dates: start: 20200316
  17. INFLECTRA [Suspect]
     Active Substance: INFLIXIMAB-DYYB
     Dosage: 5 MG/KG (400MG) EVERY 8 WEEKS
     Route: 042
     Dates: start: 20210323
  18. AMITRIPTYLINE [Concomitant]
     Active Substance: AMITRIPTYLINE
     Dosage: 10 MG, 1X/DAY (AT BEDTIME)
  19. METHOTREXATE. [Concomitant]
     Active Substance: METHOTREXATE
     Dosage: 25 MG, ONCE WEEKLY (2.5 MG 5 TABLETS IN AM AND 5 IN PM ONCE WEEKLY)
     Dates: start: 201603
  20. INFLECTRA [Suspect]
     Active Substance: INFLIXIMAB-DYYB
     Indication: RHEUMATOID ARTHRITIS
     Dosage: 400 MG, (0, 2, 6, THEN EVERY 8 WEEKS)
     Route: 042
     Dates: start: 20170823
  21. INFLECTRA [Suspect]
     Active Substance: INFLIXIMAB-DYYB
     Dosage: 400 MG, (0, 2, 6, THEN EVERY 8 WEEKS)
     Route: 042
     Dates: start: 20180125, end: 20180327
  22. INFLECTRA [Suspect]
     Active Substance: INFLIXIMAB-DYYB
     Dosage: 400 MG, (0, 2, 6, THEN EVERY 8 WEEKS)
     Route: 042
     Dates: start: 20190321
  23. INFLECTRA [Suspect]
     Active Substance: INFLIXIMAB-DYYB
     Dosage: 400 MG, (0, 2, 6, THEN EVERY 8 WEEKS)
     Route: 042
     Dates: start: 20200121
  24. INFLECTRA [Suspect]
     Active Substance: INFLIXIMAB-DYYB
     Dosage: 400 MG, (0, 2, 6, THEN EVERY 8 WEEKS)
     Route: 042
     Dates: start: 20181129
  25. INFLECTRA [Suspect]
     Active Substance: INFLIXIMAB-DYYB
     Dosage: 400 MG, (0, 2, 6, THEN EVERY 8 WEEKS)
     Route: 042
     Dates: start: 20190123
  26. INFLECTRA [Suspect]
     Active Substance: INFLIXIMAB-DYYB
     Dosage: 5 MG/KG EVERY 8 WEEKS
     Route: 042
     Dates: start: 20200909
  27. ACETAMINOPHEN. [Concomitant]
     Active Substance: ACETAMINOPHEN
     Dosage: 650 MG
     Route: 048
  28. APO?FOLIC [Concomitant]
     Active Substance: FOLIC ACID
     Dosage: 5 MG, WEEKLY
     Route: 048
  29. CELEBREX [Concomitant]
     Active Substance: CELECOXIB
     Dosage: UNK
     Dates: start: 2019
  30. MELOXICAM. [Concomitant]
     Active Substance: MELOXICAM
     Dosage: 15 MG, 1X/DAY
  31. SYNTHROID [Concomitant]
     Active Substance: LEVOTHYROXINE SODIUM
     Dosage: UNK
  32. VITAMIN D [Concomitant]
     Active Substance: VITAMIN D NOS
     Dosage: UNK
  33. INFLECTRA [Suspect]
     Active Substance: INFLIXIMAB-DYYB
     Dosage: 400 MG, (0, 2, 6, THEN EVERY 8 WEEKS)
     Route: 042
     Dates: start: 20171130
  34. INFLECTRA [Suspect]
     Active Substance: INFLIXIMAB-DYYB
     Dosage: 5 MG/KG (400MG) EVERY 8 WEEKS
     Route: 042
     Dates: start: 20201124
  35. FOLIC ACID. [Concomitant]
     Active Substance: FOLIC ACID
     Dosage: UNK
  36. METHOTREXATE. [Concomitant]
     Active Substance: METHOTREXATE
     Dosage: 15 MG, WEEKLY
     Route: 048
     Dates: start: 2009

REACTIONS (24)
  - Pneumonia [Unknown]
  - Off label use [Unknown]
  - Feeling cold [Not Recovered/Not Resolved]
  - Intervertebral disc disorder [Unknown]
  - Loss of personal independence in daily activities [Not Recovered/Not Resolved]
  - Joint swelling [Unknown]
  - Nasopharyngitis [Unknown]
  - Tremor [Unknown]
  - Back pain [Not Recovered/Not Resolved]
  - Heart rate decreased [Unknown]
  - Bronchitis [Unknown]
  - Poor venous access [Unknown]
  - Hypoaesthesia [Unknown]
  - Inappropriate schedule of product administration [Unknown]
  - Cough [Not Recovered/Not Resolved]
  - Arthralgia [Not Recovered/Not Resolved]
  - Drug ineffective [Not Recovered/Not Resolved]
  - Body temperature decreased [Unknown]
  - Arthralgia [Not Recovered/Not Resolved]
  - Grip strength decreased [Unknown]
  - Fatigue [Not Recovered/Not Resolved]
  - Blood pressure decreased [Unknown]
  - Pain in extremity [Not Recovered/Not Resolved]
  - Weight decreased [Unknown]

NARRATIVE: CASE EVENT DATE: 2017
